FAERS Safety Report 6147538-7 (Version None)
Quarter: 2009Q2

REPORT INFORMATION
  Report Type: 
  Country: None (occurrence: None)
  Receive Date: 20090408
  Receipt Date: 20090302
  Transmission Date: 20091009
  Serious: No
  Sender: FDA-Public Use
  Company Number: US-BAYER-200910708BCC

PATIENT
  Age: 62 Year
  Sex: Female
  Weight: 61 kg

DRUGS (8)
  1. ALEVE (CAPLET) [Suspect]
     Indication: ARTHRALGIA
     Dosage: TOTAL DAILY DOSE: 220 MG  UNIT DOSE: 220 MG
     Route: 048
     Dates: start: 20090302
  2. LORAZEPAM [Concomitant]
  3. TRAZODONE [Concomitant]
  4. WELLBUTRIN [Concomitant]
  5. CENTRUM SILVER [Concomitant]
  6. CALCIUM [Concomitant]
  7. VITAMIN B-12 [Concomitant]
  8. IRON [Concomitant]

REACTIONS (2)
  - ABDOMINAL PAIN UPPER [None]
  - DYSPEPSIA [None]
